FAERS Safety Report 4760335-X (Version None)
Quarter: 2005Q3

REPORT INFORMATION
  Report Type: 
  Country: None (occurrence: None)
  Receive Date: 20050831
  Receipt Date: 20050816
  Transmission Date: 20060218
  Serious: Yes (Hospitalization)
  Sender: FDA-Public Use
  Company Number: FR_050706877

PATIENT
  Age: 74 Year
  Sex: Female

DRUGS (2)
  1. GEMZAR [Suspect]
     Indication: BLADDER CANCER
     Dates: start: 20050701, end: 20050701
  2. CARBOPLATIN [Concomitant]

REACTIONS (5)
  - COMA [None]
  - EPILEPSY [None]
  - LEUKOENCEPHALOPATHY [None]
  - RENAL FAILURE [None]
  - RESPIRATORY DISTRESS [None]
